FAERS Safety Report 5010780-2 (Version None)
Quarter: 2006Q2

REPORT INFORMATION
  Report Type: 
  Country: None (occurrence: None)
  Receive Date: 20060524
  Receipt Date: 20060524
  Transmission Date: 20061013
  Serious: Yes (Hospitalization)
  Sender: FDA-Public Use
  Company Number: None

PATIENT
  Sex: Male
  Weight: 80 kg

DRUGS (2)
  1. ERBITUX [Suspect]
     Indication: NEOPLASM MALIGNANT
     Dosage: 492 MG IV
     Route: 042
     Dates: start: 20060411, end: 20060516
  2. ALIMTA [Suspect]
     Indication: NEOPLASM MALIGNANT
     Dosage: 690 MG IV
     Route: 042
     Dates: start: 20060411, end: 20060516

REACTIONS (1)
  - FEBRILE NEUTROPENIA [None]
